FAERS Safety Report 7704245-4 (Version None)
Quarter: 2011Q3

REPORT INFORMATION
  Report Type: 
  Country: None (occurrence: None)
  Receive Date: 20110823
  Receipt Date: 20110812
  Transmission Date: 20111222
  Serious: Yes (Hospitalization)
  Sender: FDA-Public Use
  Company Number: CA-JNJFOC-20110103272

PATIENT
  Sex: Female
  Weight: 88 kg

DRUGS (6)
  1. TYLENOL-500 [Concomitant]
     Indication: PREMEDICATION
     Route: 048
  2. HYDROCORTISONE [Concomitant]
     Indication: PREMEDICATION
     Route: 042
  3. REMICADE [Suspect]
     Indication: COLITIS ULCERATIVE
     Route: 042
     Dates: start: 20090706
  4. REMICADE [Suspect]
     Route: 042
     Dates: start: 20091201
  5. REMICADE [Suspect]
     Route: 042
     Dates: start: 20110621
  6. BENADRYL [Concomitant]
     Indication: PREMEDICATION
     Route: 042

REACTIONS (2)
  - CAESAREAN SECTION [None]
  - MATERNAL EXPOSURE DURING PREGNANCY [None]
